FAERS Safety Report 4686877-3 (Version None)
Quarter: 2005Q2

REPORT INFORMATION
  Report Type: 
  Country: None (occurrence: None)
  Receive Date: 20050608
  Receipt Date: 20050523
  Transmission Date: 20051028
  Serious: Yes (Hospitalization)
  Sender: FDA-Public Use
  Company Number: 2005-0008368

PATIENT
  Age: 42 Year
  Sex: Female
  Weight: 56.4 kg

DRUGS (8)
  1. VIREAD [Suspect]
     Indication: HIV INFECTION
     Dosage: 300 MG, 1 IN 1 D, ORAL
     Route: 048
     Dates: start: 20031001, end: 20050419
  2. DIDANOSINE [Suspect]
     Indication: HIV INFECTION
     Dosage: 250 MG, 1 IN 1D, ORAL
     Route: 048
     Dates: start: 20031001, end: 20050419
  3. LAMIVUDINE [Suspect]
     Indication: HIV INFECTION
     Dosage: 2 DOSAGE  FORMS, 1 IN 1 D, ORAL
     Route: 048
     Dates: start: 20031001, end: 20050419
  4. BENDROFLUAZIDE (BENDROFLUMETHIAZIDE) [Suspect]
     Indication: HYPERTENSION
     Dosage: 2.5 MG, 1 IN 1 D, ORAL
     Route: 048
     Dates: start: 20040126, end: 20050424
  5. TRANEXAMIC ACID 9TRANEXAMIC ACID) [Concomitant]
  6. CO-TRIMOXAZOLE (CO-TRAMOXAZOLE) [Concomitant]
  7. PAROXETINE HCL [Concomitant]
  8. HYOSCINE N-BUTYLBROMIDE (HYOSCINE BUTYLBROMIDE) [Concomitant]

REACTIONS (8)
  - HEPATIC STEATOSIS [None]
  - HYPERTENSION [None]
  - HYPOCALCAEMIA [None]
  - HYPOKALAEMIA [None]
  - HYPOPHOSPHATAEMIA [None]
  - LACTIC ACIDOSIS [None]
  - MENORRHAGIA [None]
  - VOMITING [None]
